FAERS Safety Report 17908662 (Version 1)
Quarter: 2020Q2

REPORT INFORMATION
  Report Type: Spontaneous
  Country: BR (occurrence: BR)
  Receive Date: 20200617
  Receipt Date: 20200617
  Transmission Date: 20200714
  Serious: Yes (Other)
  Sender: FDA-Public Use
  Company Number: BR-GILEAD-2020-0467342

PATIENT
  Age: 61 Year
  Sex: Female
  Weight: 59 kg

DRUGS (7)
  1. EPCLUSA [Suspect]
     Active Substance: SOFOSBUVIR\VELPATASVIR
     Indication: HEPATITIS C
     Dosage: 1 DOSAGE FORM, QD
     Route: 065
     Dates: start: 202003, end: 20200525
  2. CLONAZEPAM. [Concomitant]
     Active Substance: CLONAZEPAM
  3. TAPAZOLE [Concomitant]
     Active Substance: METHIMAZOLE
     Dosage: UNK
  4. LOSARTAN. [Concomitant]
     Active Substance: LOSARTAN
  5. PARACETAMOL [Concomitant]
     Active Substance: ACETAMINOPHEN
  6. OMENAX [OMEPRAZOLE] [Concomitant]
     Indication: GASTRITIS
     Dosage: 1 DOSAGE FORM
     Route: 048
     Dates: end: 20200512
  7. FERNEGAN [Concomitant]

REACTIONS (5)
  - Therapeutic response unexpected [Unknown]
  - Hypertension [Recovered/Resolved]
  - Pruritus [Recovered/Resolved]
  - Burning sensation [Recovered/Resolved]
  - Dry mouth [Unknown]

NARRATIVE: CASE EVENT DATE: 20200508
